FAERS Safety Report 9890446 (Version 1)
Quarter: 2014Q1

REPORT INFORMATION
  Report Type: Spontaneous
  Country: US (occurrence: None)
  Receive Date: 20140210
  Receipt Date: 20140210
  Transmission Date: 20141002
  Serious: No
  Sender: FDA-Public Use
  Company Number: None

PATIENT
  Age: 51 Year
  Sex: Female
  Weight: 103.87 kg

DRUGS (1)
  1. ESCITALOPRAM [Suspect]
     Indication: ANXIETY
     Route: 048
     Dates: start: 20140123

REACTIONS (5)
  - Palpitations [None]
  - Anxiety [None]
  - Drug withdrawal syndrome [None]
  - Atrial fibrillation [None]
  - Product substitution issue [None]
